FAERS Safety Report 7510477-0 (Version None)
Quarter: 2011Q2

REPORT INFORMATION
  Report Type: 
  Country: None (occurrence: None)
  Receive Date: 20110527
  Receipt Date: 20110523
  Transmission Date: 20111010
  Serious: Yes (Other)
  Sender: FDA-Public Use
  Company Number: US-PFIZER INC-2011111858

PATIENT
  Sex: Female
  Weight: 88.435 kg

DRUGS (3)
  1. LAMICTAL [Concomitant]
     Indication: BIPOLAR DISORDER
     Dosage: 200 MG, DAILY
     Route: 048
  2. ZOLOFT [Suspect]
     Indication: OBSESSIVE-COMPULSIVE DISORDER
     Dosage: 100 MG, 1X/DAY
  3. ZOLOFT [Suspect]
     Indication: DEPRESSION
     Dosage: 200 MG, DAILY
     Route: 048
     Dates: start: 20110101

REACTIONS (4)
  - DEPRESSION [None]
  - OBSESSIVE-COMPULSIVE DISORDER [None]
  - SUICIDAL IDEATION [None]
  - DRUG INEFFECTIVE [None]
